FAERS Safety Report 5737721-4 (Version None)
Quarter: 2008Q2

REPORT INFORMATION
  Report Type: 
  Country: None (occurrence: None)
  Receive Date: 20080512
  Receipt Date: 20080512
  Transmission Date: 20081010
  Serious: No
  Sender: FDA-Public Use
  Company Number: None

PATIENT
  Sex: Female
  Weight: 68.0396 kg

DRUGS (1)
  1. PRO-HEALTH MOUTH WASH [Suspect]

REACTIONS (3)
  - GLOSSODYNIA [None]
  - NO THERAPEUTIC RESPONSE [None]
  - ORAL DISCOMFORT [None]
